FAERS Safety Report 7290009-5 (Version None)
Quarter: 2011Q1

REPORT INFORMATION
  Report Type: 
  Country: None (occurrence: None)
  Receive Date: 20110209
  Receipt Date: 20110209
  Transmission Date: 20110831
  Serious: Yes (Hospitalization)
  Sender: FDA-Public Use
  Company Number: None

PATIENT
  Age: 46 Year
  Sex: Female
  Weight: 61.2356 kg

DRUGS (1)
  1. AQUAFRESH TOOTHPASTE [Suspect]
     Indication: DENTAL DISORDER PROPHYLAXIS
     Dosage: TWICE DAILY EVERY DAY
     Dates: start: 20101113

REACTIONS (6)
  - ABDOMINAL PAIN UPPER [None]
  - PALPITATIONS [None]
  - DYSPNOEA [None]
  - WEIGHT DECREASED [None]
  - DYSPHAGIA [None]
  - CHOKING SENSATION [None]
